FAERS Safety Report 15157242 (Version 2)
Quarter: 2018Q3

REPORT INFORMATION
  Report Type: Spontaneous
  Country: FR (occurrence: FR)
  Receive Date: 20180718
  Receipt Date: 20180809
  Transmission Date: 20181010
  Serious: Yes (Life-Threatening, Hospitalization, Other)
  Sender: FDA-Public Use
  Company Number: FR-TEVA-2018-FR-881727

PATIENT
  Age: 54 Year
  Sex: Male
  Weight: 80 kg

DRUGS (15)
  1. THERALENE 5 MG, COMPRIM? PELLICUL? S?CABLE [Suspect]
     Active Substance: TRIMEPRAZINE TARTRATE
     Indication: SUICIDE ATTEMPT
     Dosage: 30 MILLIGRAM DAILY;
     Route: 048
  2. TEMESTA 1 MG, COMPRIME SECABLE [Concomitant]
     Active Substance: LORAZEPAM
     Indication: PRODUCT USED FOR UNKNOWN INDICATION
  3. QUETIAPINE. [Suspect]
     Active Substance: QUETIAPINE
     Indication: SUICIDE ATTEMPT
     Route: 048
     Dates: start: 20180428, end: 20180428
  4. MOVICOL [Concomitant]
     Active Substance: POLYETHYLENE GLYCOL 3350\POTASSIUM CHLORIDE\SODIUM BICARBONATE\SODIUM CHLORIDE
     Indication: PRODUCT USED FOR UNKNOWN INDICATION
     Dosage: DOSAGE UNKNOWN
     Route: 048
  5. QUETIAPINE. [Concomitant]
     Active Substance: QUETIAPINE
     Indication: PRODUCT USED FOR UNKNOWN INDICATION
     Dosage: 800 MILLIGRAM DAILY;
     Route: 048
     Dates: start: 20171128
  6. SULFARLEM [Concomitant]
     Active Substance: ANETHOLTRITHION
     Indication: PRODUCT USED FOR UNKNOWN INDICATION
  7. TERCIAN 25 MG, COMPRIM? PELLICUL? S?CABLE [Concomitant]
     Active Substance: CYAMEMAZINE
     Indication: PRODUCT USED FOR UNKNOWN INDICATION
     Dosage: 100 MILLIGRAM DAILY;
     Route: 048
  8. LEPTICUR 10 MG, COMPRIM? [Concomitant]
     Active Substance: TROPATEPINE HYDROCHLORIDE
     Indication: PRODUCT USED FOR UNKNOWN INDICATION
     Dosage: 20 MILLIGRAM DAILY;
     Route: 048
  9. DOLIPRANE 500 MG, COMPRIM? [Concomitant]
     Indication: PRODUCT USED FOR UNKNOWN INDICATION
     Dosage: 3000 MILLIGRAM DAILY;
     Route: 048
  10. IMOVANE [Concomitant]
     Active Substance: ZOPICLONE
     Indication: PRODUCT USED FOR UNKNOWN INDICATION
     Dosage: 7.5 MILLIGRAM DAILY;
     Route: 048
  11. MIRTAZAPINE. [Suspect]
     Active Substance: MIRTAZAPINE
     Indication: SUICIDE ATTEMPT
     Dosage: ASSUMED UNKNOWN INGESTED DOSE
     Route: 048
     Dates: start: 20171128, end: 20171128
  12. MIRTAZAPINE. [Suspect]
     Active Substance: MIRTAZAPINE
     Route: 048
     Dates: start: 20180428, end: 20180428
  13. THERALENE 5 MG, COMPRIM? PELLICUL? S?CABLE [Suspect]
     Active Substance: TRIMEPRAZINE TARTRATE
     Dates: start: 20180428, end: 20180428
  14. DEPAMIDE 300 MG, GASTRO?RESISTANT FILM?COATED TABLET [Suspect]
     Active Substance: VALPROMIDE
     Indication: SUICIDE ATTEMPT
     Route: 048
     Dates: start: 20180428, end: 20180428
  15. VALIUM [Concomitant]
     Active Substance: DIAZEPAM
     Indication: PRODUCT USED FOR UNKNOWN INDICATION
     Dosage: 20 MILLIGRAM DAILY;
     Route: 048

REACTIONS (5)
  - Extrapyramidal disorder [Recovered/Resolved]
  - Coma [Recovered/Resolved]
  - Suicide attempt [Unknown]
  - Sinus tachycardia [Recovered/Resolved]
  - Disturbance in attention [Recovered/Resolved]

NARRATIVE: CASE EVENT DATE: 20171128
